FAERS Safety Report 18545023 (Version 1)
Quarter: 2020Q4

REPORT INFORMATION
  Report Type: Spontaneous
  Country: US (occurrence: US)
  Receive Date: 20201125
  Receipt Date: 20201125
  Transmission Date: 20210114
  Serious: No
  Sender: FDA-Public Use
  Company Number: US-TAKEDA-2020TUS045543

PATIENT
  Sex: Female
  Weight: 69.84 kg

DRUGS (25)
  1. DIPHENHYDRAMINE. [Concomitant]
     Active Substance: DIPHENHYDRAMINE
  2. SIMVASTATIN. [Concomitant]
     Active Substance: SIMVASTATIN
  3. IBUPROFEN. [Concomitant]
     Active Substance: IBUPROFEN
  4. DIOVAN HCT [Concomitant]
     Active Substance: HYDROCHLOROTHIAZIDE\VALSARTAN
  5. KETOROLAC [Concomitant]
     Active Substance: KETOROLAC TROMETHAMINE
  6. SPIRIVA [Concomitant]
     Active Substance: TIOTROPIUM BROMIDE MONOHYDRATE
  7. BISOPROLOL [Concomitant]
     Active Substance: BISOPROLOL
  8. MONTELUKAST [Concomitant]
     Active Substance: MONTELUKAST SODIUM
  9. NORMAL SALINE [Concomitant]
     Active Substance: SODIUM CHLORIDE
  10. DETROL [Concomitant]
     Active Substance: TOLTERODINE TARTRATE
  11. CELEBREX [Concomitant]
     Active Substance: CELECOXIB
  12. LORAZEPAM. [Concomitant]
     Active Substance: LORAZEPAM
  13. VENTOLIN HFA [Concomitant]
     Active Substance: ALBUTEROL SULFATE
  14. VICODIN ES [Concomitant]
     Active Substance: ACETAMINOPHEN\HYDROCODONE BITARTRATE
  15. ASPIRIN [ACETYLSALICYLIC ACID] [Concomitant]
     Active Substance: ASPIRIN
  16. FLUTICASONE. [Concomitant]
     Active Substance: FLUTICASONE
  17. QVAR [Concomitant]
     Active Substance: BECLOMETHASONE DIPROPIONATE
  18. HYQVIA [Suspect]
     Active Substance: HUMAN IMMUNOGLOBULIN G\HYALURONIDASE RECOMBINANT HUMAN
     Indication: CONGENITAL HYPOGAMMAGLOBULINAEMIA
     Dosage: 27.5 GRAM, Q4WEEKS
     Route: 058
     Dates: start: 20180805
  19. AZITHROMYCIN ANHYDROUS. [Concomitant]
     Active Substance: AZITHROMYCIN ANHYDROUS
  20. GABAPENTIN. [Concomitant]
     Active Substance: GABAPENTIN
  21. EPINEPHRINE. [Concomitant]
     Active Substance: EPINEPHRINE
  22. NEXIUM I.V. [Concomitant]
     Active Substance: ESOMEPRAZOLE SODIUM
  23. BRIMONIDINE [Concomitant]
     Active Substance: BRIMONIDINE TARTRATE
  24. CENTRUM A TO ZINC [Concomitant]
     Active Substance: MINERALS\VITAMINS
  25. LEVOTHYROXINE. [Concomitant]
     Active Substance: LEVOTHYROXINE

REACTIONS (2)
  - Cystitis interstitial [Unknown]
  - Urinary tract infection [Unknown]
